FAERS Safety Report 4642114-7 (Version None)
Quarter: 2005Q2

REPORT INFORMATION
  Report Type: 
  Country: None (occurrence: None)
  Receive Date: 20050421
  Receipt Date: 20050421
  Transmission Date: 20051028
  Serious: Yes (Life-Threatening, Hospitalization)
  Sender: FDA-Public Use
  Company Number: None

PATIENT
  Age: 34 Year
  Sex: Female
  Weight: 45.3597 kg

DRUGS (10)
  1. CETACAINE SPRAY [Suspect]
     Indication: ENDOSCOPY
     Dates: start: 20050209
  2. LIDOCAINE VISCOUS [Suspect]
     Indication: ENDOSCOPY
     Dates: start: 20050209
  3. OXYCONTIN [Concomitant]
  4. LAMICTAL [Concomitant]
  5. CIPRO [Concomitant]
  6. ZELNORM [Concomitant]
  7. LACTINEX [Concomitant]
  8. FESO4 [Concomitant]
  9. FOLIC ACID [Concomitant]
  10. NEXIUM [Concomitant]

REACTIONS (1)
  - METHAEMOGLOBINAEMIA [None]
